FAERS Safety Report 5037228-6 (Version None)
Quarter: 2006Q2

REPORT INFORMATION
  Report Type: 
  Country: None (occurrence: None)
  Receive Date: 20060628
  Receipt Date: 20060622
  Transmission Date: 20061013
  Serious: Yes (Death, Hospitalization)
  Sender: FDA-Public Use
  Company Number: US-SANOFI-SYNTHELABO-F03200600143

PATIENT
  Age: 60 Year
  Sex: Female

DRUGS (17)
  1. DARVON [Concomitant]
     Dosage: 1 TO 2 CAPSULES EVERY 6 HOURS
     Route: 048
  2. ZOFRAN [Concomitant]
     Dosage: 8 MG EVERY 8 HOURS PRN
     Route: 048
  3. LIPITOR [Concomitant]
     Route: 048
  4. ZYRTEC [Concomitant]
     Route: 048
  5. LEVOXYL [Concomitant]
     Route: 048
  6. LANOXIN [Concomitant]
     Route: 048
  7. TOPROL-XL [Concomitant]
     Route: 048
  8. DIOVAN [Concomitant]
     Route: 048
  9. BYETTA [Concomitant]
     Route: 058
  10. ACTOS [Concomitant]
     Route: 048
  11. LEVAQUIN [Concomitant]
     Route: 048
  12. VALTREX [Concomitant]
     Route: 048
  13. FLUDARABINE [Suspect]
     Indication: CHRONIC LYMPHOCYTIC LEUKAEMIA REFRACTORY
     Route: 042
     Dates: start: 20060501, end: 20060501
  14. CYTARABINE [Suspect]
     Indication: CHRONIC LYMPHOCYTIC LEUKAEMIA REFRACTORY
     Route: 042
     Dates: start: 20060501, end: 20060501
  15. RITUXAN [Suspect]
     Indication: CHRONIC LYMPHOCYTIC LEUKAEMIA REFRACTORY
     Route: 042
     Dates: start: 20060501, end: 20060501
  16. BACTRIM DS [Concomitant]
     Route: 048
  17. OXALIPLATIN [Suspect]
     Indication: CHRONIC LYMPHOCYTIC LEUKAEMIA REFRACTORY
     Route: 042
     Dates: start: 20060501, end: 20060501

REACTIONS (1)
  - DISEASE PROGRESSION [None]
